FAERS Safety Report 5074744-5 (Version None)
Quarter: 2006Q3

REPORT INFORMATION
  Report Type: 
  Country: None (occurrence: None)
  Receive Date: 20060807
  Receipt Date: 20060725
  Transmission Date: 20061208
  Serious: Yes (Other)
  Sender: FDA-Public Use
  Company Number: FR200607004602

PATIENT
  Age: 78 Year
  Sex: Female

DRUGS (1)
  1. EVISTA [Suspect]
     Indication: OSTEOPOROSIS
     Dosage: 60 MG DAILY (1/D) ORAL
     Route: 048
     Dates: start: 20040701, end: 20060701

REACTIONS (4)
  - ASTHENIA [None]
  - FALL [None]
  - GLOBAL AMNESIA [None]
  - MEMORY IMPAIRMENT [None]
